FAERS Safety Report 13619350 (Version 1)
Quarter: 2017Q2

REPORT INFORMATION
  Report Type: Spontaneous
  Country: US (occurrence: US)
  Receive Date: 20170606
  Receipt Date: 20170606
  Transmission Date: 20170830
  Serious: Yes (Other)
  Sender: FDA-Public Use
  Company Number: None

PATIENT
  Age: 64 Year
  Sex: Female

DRUGS (1)
  1. FORTEO [Suspect]
     Active Substance: TERIPARATIDE
     Indication: OSTEOPOROSIS
     Route: 058
     Dates: start: 20170203

REACTIONS (5)
  - Constipation [None]
  - Gait disturbance [None]
  - Muscle spasms [None]
  - Asthma [None]
  - Asthenia [None]

NARRATIVE: CASE EVENT DATE: 20170301
